FAERS Safety Report 21052775 (Version 1)
Quarter: 2022Q3

REPORT INFORMATION
  Report Type: Spontaneous
  Country: IT (occurrence: IT)
  Receive Date: 20220707
  Receipt Date: 20220707
  Transmission Date: 20221027
  Serious: Yes (Hospitalization)
  Sender: FDA-Public Use
  Company Number: IT-MYLANLABS-2022M1051347

PATIENT
  Age: 44 Year
  Sex: Male

DRUGS (2)
  1. EPINEPHRINE [Suspect]
     Active Substance: EPINEPHRINE
     Indication: Hypotension
     Dosage: UNK
     Route: 065
  2. LANDIOLOL [Concomitant]
     Active Substance: LANDIOLOL
     Indication: Tachyarrhythmia
     Dosage: UNK; 9U/KG/MIN INFUSION
     Route: 065

REACTIONS (2)
  - Atrial fibrillation [Recovering/Resolving]
  - Condition aggravated [Recovering/Resolving]
